FAERS Safety Report 8531412-2 (Version None)
Quarter: 2012Q3

REPORT INFORMATION
  Report Type: 
  Country: None (occurrence: None)
  Receive Date: 20120723
  Receipt Date: 20120710
  Transmission Date: 20120928
  Serious: Yes (Hospitalization)
  Sender: FDA-Public Use
  Company Number: CA-UCBSA-061433

PATIENT
  Age: 81 Year
  Sex: Female

DRUGS (6)
  1. METHOTREXATE [Concomitant]
     Indication: RHEUMATOID ARTHRITIS
     Route: 058
     Dates: start: 20101101
  2. LIPITOR [Concomitant]
     Indication: BLOOD CHOLESTEROL
     Route: 048
  3. NORVASC [Concomitant]
     Indication: HYPERTENSION
     Route: 048
  4. CIMZIA [Suspect]
     Indication: RHEUMATOID ARTHRITIS
     Route: 058
     Dates: start: 20110811, end: 20120101
  5. CIMZIA [Suspect]
     Route: 058
     Dates: start: 20110616, end: 20110714
  6. HZT [Concomitant]
     Indication: HYPERTENSION
     Route: 048

REACTIONS (5)
  - TREMOR [None]
  - PYREXIA [None]
  - CONFUSIONAL STATE [None]
  - GASTRITIS [None]
  - INFLAMMATION [None]
